FAERS Safety Report 16462168 (Version 1)
Quarter: 2019Q2

REPORT INFORMATION
  Report Type: Spontaneous
  Country: DE (occurrence: DE)
  Receive Date: 20190621
  Receipt Date: 20190621
  Transmission Date: 20190711
  Serious: Yes (Other)
  Sender: FDA-Public Use
  Company Number: PHHY2019DE140620

PATIENT
  Age: 42 Year
  Sex: Female
  Weight: 80 kg

DRUGS (5)
  1. QUETIAPINE. [Suspect]
     Active Substance: QUETIAPINE
     Indication: ORGANIC BRAIN SYNDROME
     Dosage: 50 MG, QD
     Route: 048
     Dates: start: 20180319, end: 20181212
  2. LEVETIRACETAM. [Concomitant]
     Active Substance: LEVETIRACETAM
     Indication: EPILEPSY
     Dosage: UNK 1500 [MG/D (2X750 BZW. 3X500 MG/D) ]
     Route: 048
  3. PIRACETAM [Concomitant]
     Active Substance: PIRACETAM
     Indication: ORGANIC BRAIN SYNDROME
     Dosage: 1200 MG, QD
     Route: 048
  4. LEVEMIR [Concomitant]
     Active Substance: INSULIN DETEMIR
     Indication: GESTATIONAL DIABETES
     Dosage: UNK 3 [I.E./D ]
     Route: 058
  5. GINGIUM [Concomitant]
     Active Substance: GINKGO
     Indication: ORGANIC BRAIN SYNDROME
     Dosage: 120 MG, QD
     Route: 048

REACTIONS (2)
  - Gestational diabetes [Recovered/Resolved]
  - Exposure during pregnancy [Unknown]
